FAERS Safety Report 4458977-4 (Version None)
Quarter: 2004Q3

REPORT INFORMATION
  Report Type: 
  Country: None (occurrence: None)
  Receive Date: 20040922
  Receipt Date: 20040922
  Transmission Date: 20050211
  Serious: No
  Sender: FDA-Public Use
  Company Number: None

PATIENT
  Age: 52 Year
  Sex: Female

DRUGS (1)
  1. DILAUDID [Suspect]
     Indication: SUTURE INSERTION
     Dosage: 3 MG IV X1
     Route: 042
     Dates: start: 20040728

REACTIONS (2)
  - HYPERTENSION [None]
  - RESPIRATORY DEPRESSION [None]
